FAERS Safety Report 24684558 (Version 1)
Quarter: 2024Q4

REPORT INFORMATION
  Report Type: Spontaneous
  Country: ES (occurrence: ES)
  Receive Date: 20241202
  Receipt Date: 20241202
  Transmission Date: 20250115
  Serious: Yes (Other)
  Sender: BRISTOL-MYERS SQUIBB COMPANY
  Company Number: None

PATIENT
  Age: 72 Year
  Sex: Male

DRUGS (12)
  1. NIVOLUMAB [Suspect]
     Active Substance: NIVOLUMAB
     Indication: Renal cancer stage IV
     Dosage: 240.0 MG C/14 DAYS
     Route: 042
     Dates: start: 20230830, end: 20231025
  2. CHOLECALCIFEROL [Concomitant]
     Active Substance: CHOLECALCIFEROL
     Indication: Vitamin D deficiency
     Dosage: DRUG STRENGTH - 25,000 IU/2.5 ML
     Route: 048
     Dates: start: 20190625
  3. VICTOZA [Concomitant]
     Active Substance: LIRAGLUTIDE
     Indication: Diabetes mellitus
     Dosage: 1.8 MG C/24 H
     Route: 058
     Dates: start: 20221122
  4. BISOPROLOL FUMARATE [Concomitant]
     Active Substance: BISOPROLOL FUMARATE
     Indication: Atrial fibrillation
     Dosage: 5.0 MG DECE
     Route: 048
     Dates: start: 20210226
  5. PARACETAMOL KERN PHARMA [Concomitant]
     Indication: Product used for unknown indication
     Dosage: 1.0 G DECOCE
     Route: 048
     Dates: start: 20180508
  6. LORAZEPAM [Concomitant]
     Active Substance: LORAZEPAM
     Indication: Insomnia
     Dosage: 1.0 MG DECE
     Route: 048
     Dates: start: 20230224
  7. ATROVENT [Concomitant]
     Active Substance: IPRATROPIUM BROMIDE
     Indication: Bronchitis chronic
     Dosage: DRUG STRENGTH - 500 MCG/ 2ML
     Route: 050
     Dates: start: 20210504
  8. ABASAGLAR KWIKPEN [Concomitant]
     Indication: Diabetes mellitus
     Dosage: 16.0 UI C/24 H
     Route: 058
     Dates: start: 20210928
  9. OMEPRAZOLE [Concomitant]
     Active Substance: OMEPRAZOLE
     Indication: Diaphragmatic hernia
     Dosage: 20.0 MG A-DECE
     Route: 048
     Dates: start: 20101027
  10. FUROSEMIDA KERN PHARMA [Concomitant]
     Indication: Cardiomyopathy
     Dosage: 40.0 MG DECOCE
     Route: 048
     Dates: start: 20210624
  11. DUTASTERIDA/TAMSULOSINA [Concomitant]
     Indication: Benign prostatic hyperplasia
     Dosage: 1.0 CAPS OF?DRUG STRENGTH- 0.5 MG/0.4 MG
     Route: 048
     Dates: start: 20230711
  12. BUDESONIDE\FORMOTEROL\GLYCOPYRRONIUM [Concomitant]
     Active Substance: BUDESONIDE\FORMOTEROL\GLYCOPYRRONIUM
     Indication: Bronchitis chronic
     Dosage: 2.0 PUFF C/12 H ?DRUG STRENGTH- 5 MICROGRAMS/7.2 MICROGRAMS/160 MICROGRAMS
     Route: 050
     Dates: start: 20231010

REACTIONS (1)
  - Pemphigoid [Recovered/Resolved]

NARRATIVE: CASE EVENT DATE: 20231107
